FAERS Safety Report 9170723 (Version 4)
Quarter: 2013Q2

REPORT INFORMATION
  Report Type: Spontaneous
  Country: US (occurrence: None)
  Receive Date: 20130312
  Receipt Date: 20130514
  Transmission Date: 20140414
  Serious: Yes (Other)
  Sender: FDA-Public Use
  Company Number: ADR-2013-00386

PATIENT
  Sex: Female

DRUGS (6)
  1. BACLOFEN [Suspect]
     Indication: PAIN
  2. DILAUDID (HYDROMORPHONE) INTRATHECAL [Concomitant]
  3. NUCYNTA [Concomitant]
  4. OXYCODONE [Concomitant]
  5. PERCOCET [Concomitant]
  6. CLONAZEPAM ORAL [Concomitant]

REACTIONS (12)
  - Fall [None]
  - Drug ineffective [None]
  - Drug prescribing error [None]
  - Device difficult to use [None]
  - Device battery issue [None]
  - Memory impairment [None]
  - Thinking abnormal [None]
  - Mobility decreased [None]
  - Back injury [None]
  - Adverse drug reaction [None]
  - Insomnia [None]
  - Device dislocation [None]
